FAERS Safety Report 20490875 (Version 1)
Quarter: 2022Q1

REPORT INFORMATION
  Report Type: Spontaneous
  Country: US (occurrence: US)
  Receive Date: 20220218
  Receipt Date: 20220218
  Transmission Date: 20220423
  Serious: Yes (Other)
  Sender: FDA-Public Use
  Company Number: US-JNJFOC-20210926577

PATIENT
  Age: 59 Year
  Sex: Female

DRUGS (2)
  1. BALVERSA [Suspect]
     Active Substance: ERDAFITINIB
     Indication: Product used for unknown indication
     Route: 048
  2. KEYTRUDA [Suspect]
     Active Substance: PEMBROLIZUMAB
     Indication: Product used for unknown indication
     Route: 065

REACTIONS (11)
  - Ketoacidosis [Unknown]
  - Sepsis [Unknown]
  - Drug hypersensitivity [Unknown]
  - Taste disorder [Not Recovered/Not Resolved]
  - Stomatitis [Not Recovered/Not Resolved]
  - Dry mouth [Not Recovered/Not Resolved]
  - Dry eye [Not Recovered/Not Resolved]
  - Onychalgia [Not Recovered/Not Resolved]
  - Gingival disorder [Unknown]
  - Feeling abnormal [Unknown]
  - Nail infection [Not Recovered/Not Resolved]

NARRATIVE: CASE EVENT DATE: 20210914
